FAERS Safety Report 4939557-0 (Version None)
Quarter: 2006Q1

REPORT INFORMATION
  Report Type: 
  Country: None (occurrence: None)
  Receive Date: 20060306
  Receipt Date: 20060227
  Transmission Date: 20060701
  Serious: Yes (Hospitalization)
  Sender: FDA-Public Use
  Company Number: A044-002-005979

PATIENT
  Age: 82 Year
  Sex: Male

DRUGS (2)
  1. DONEPEZIL HCL [Suspect]
     Indication: DEMENTIA ALZHEIMER'S TYPE
     Dosage: 5 MG, 1 IN 1 D, ORAL
     Route: 048
     Dates: start: 20060110, end: 20060117
  2. FUROSEMIDE [Concomitant]

REACTIONS (4)
  - AGITATION [None]
  - HYPERTENSIVE CRISIS [None]
  - MALAISE [None]
  - VOMITING [None]
